FAERS Safety Report 7878606-7 (Version None)
Quarter: 2011Q4

REPORT INFORMATION
  Report Type: 
  Country: None (occurrence: None)
  Receive Date: 20111101
  Receipt Date: 20111101
  Transmission Date: 20120403
  Serious: No
  Sender: FDA-Public Use
  Company Number: None

PATIENT
  Age: 45 Year
  Sex: Female
  Weight: 56.699 kg

DRUGS (4)
  1. TOPIRAMATE [Suspect]
     Indication: BLOOD CHOLESTEROL INCREASED
     Dosage: 1
     Route: 048
     Dates: start: 20111019, end: 20111029
  2. SYNTHROID [Concomitant]
     Route: 048
  3. VALVOCYCLIVIR [Concomitant]
     Route: 048
  4. SIMVASTATIN [Concomitant]
     Indication: MIGRAINE PROPHYLAXIS
     Dosage: 1
     Route: 048
     Dates: start: 20111019, end: 20111031

REACTIONS (2)
  - GLOSSODYNIA [None]
  - SPEECH DISORDER [None]
